FAERS Safety Report 9900302 (Version 2)
Quarter: 2014Q1

REPORT INFORMATION
  Report Type: Spontaneous
  Country: US (occurrence: US)
  Receive Date: 20140216
  Receipt Date: 20140314
  Transmission Date: 20141002
  Serious: No
  Sender: FDA-Public Use
  Company Number: US-009507513-1402USA006759

PATIENT
  Age: 72 Year
  Sex: Male

DRUGS (1)
  1. NASONEX [Suspect]
     Dosage: 50MCG 1 STANDARD DOSE OF 17
     Dates: start: 20140211

REACTIONS (3)
  - Drug dose omission [Unknown]
  - Product quality issue [Unknown]
  - No adverse event [Unknown]
